FAERS Safety Report 9496243 (Version 4)
Quarter: 2013Q4

REPORT INFORMATION
  Report Type: Spontaneous
  Country: IT (occurrence: None)
  Receive Date: 20130829
  Receipt Date: 20131105
  Transmission Date: 20140711
  Serious: Yes (Other)
  Sender: FDA-Public Use
  Company Number: AUR-APL-2013-06999

PATIENT
  Age: 84 Year
  Sex: Female

DRUGS (4)
  1. MIRTAZAPINE [Suspect]
     Indication: DEPRESSION
     Dosage: 1 DOSAGE FORMS, 1 D
     Route: 048
     Dates: start: 20120424, end: 20130423
  2. ALPRAZOLAM (ALPRAZOLAM) [Suspect]
     Indication: DEPRESSION
     Dosage: 1 DOSAGE FORMS, 1 D
     Route: 048
     Dates: start: 20120424, end: 20130423
  3. MIRAPEXIN [Suspect]
     Indication: PARKINSON^S DISEASE
     Dosage: (2.1 MG,1 D)
     Route: 048
     Dates: start: 20120424, end: 20130423
  4. SINEMET [Suspect]
     Indication: PARKINSON^S DISEASE
     Dosage: (1 DOSAGE FORMS,1 D)
     Route: 048
     Dates: start: 20120424, end: 20130423

REACTIONS (1)
  - Sopor [None]
